FAERS Safety Report 13694837 (Version 5)
Quarter: 2020Q3

REPORT INFORMATION
  Report Type: Report from Study
  Country: US (occurrence: US)
  Receive Date: 20170627
  Receipt Date: 20170811
  Transmission Date: 20201105
  Serious: Yes (Hospitalization)
  Sender: FDA-Public Use
  Company Number: US-JNJFOC-20170619079

PATIENT
  Age: 73 Year
  Sex: Male
  Weight: 90.4 kg

DRUGS (5)
  1. JNJ?56021927 [Suspect]
     Active Substance: APALUTAMIDE
     Indication: PROSTATE CANCER METASTATIC
     Route: 048
     Dates: start: 20170314, end: 20170613
  2. IPILIMUMAB [Suspect]
     Active Substance: IPILIMUMAB
     Indication: PROSTATE CANCER METASTATIC
     Route: 042
     Dates: start: 20170523
  3. ABIRATERONE ACETATE. [Suspect]
     Active Substance: ABIRATERONE ACETATE
     Indication: PROSTATE CANCER METASTATIC
     Route: 048
     Dates: start: 20170314, end: 20170613
  4. ABIRATERONE ACETATE. [Suspect]
     Active Substance: ABIRATERONE ACETATE
     Route: 048
  5. PREDNISONE. [Suspect]
     Active Substance: PREDNISONE
     Indication: PROSTATE CANCER METASTATIC
     Route: 048
     Dates: start: 20170314

REACTIONS (3)
  - Diarrhoea [Recovered/Resolved]
  - Malaise [Unknown]
  - Abdominal pain [Unknown]

NARRATIVE: CASE EVENT DATE: 2017
